FAERS Safety Report 8401560-6 (Version None)
Quarter: 2012Q2

REPORT INFORMATION
  Report Type: 
  Country: None (occurrence: None)
  Receive Date: 20120525
  Receipt Date: 20120514
  Transmission Date: 20120825
  Serious: Yes (Congenital Anomaly, Other)
  Sender: FDA-Public Use
  Company Number: 2012P1025491

PATIENT
  Sex: Female
  Weight: 2.6 kg

DRUGS (2)
  1. PHENOBARBITAL TAB [Suspect]
     Indication: CONVULSION
     Dosage: 100 MG;TID;TRPL
     Route: 064
  2. FOLIC ACID [Concomitant]

REACTIONS (6)
  - CLEFT PALATE [None]
  - PATENT DUCTUS ARTERIOSUS [None]
  - PERSISTENT CLOACA [None]
  - MATERNAL DRUGS AFFECTING FOETUS [None]
  - VESICOURETERIC REFLUX [None]
  - CONGENITAL VESICOURETERIC REFLUX [None]
